FAERS Safety Report 8085393-9 (Version None)
Quarter: 2012Q1

REPORT INFORMATION
  Report Type: 
  Country: None (occurrence: None)
  Receive Date: 20120128
  Receipt Date: 20110606
  Transmission Date: 20120608
  Serious: Yes (Other)
  Sender: FDA-Public Use
  Company Number: US-ABBOTT-10P-163-0682017-00

PATIENT
  Sex: Female

DRUGS (9)
  1. EFFEXOR [Concomitant]
     Indication: DEPRESSION
     Route: 048
  2. FOLIC ACID [Concomitant]
     Indication: VITAMIN SUPPLEMENTATION
     Route: 048
  3. HUMIRA [Suspect]
     Indication: RHEUMATOID ARTHRITIS
     Route: 058
     Dates: start: 20100601, end: 20101101
  4. CALCIUM [Concomitant]
     Indication: MINERAL SUPPLEMENTATION
     Route: 048
  5. METOPROLOL TARTRATE [Concomitant]
     Indication: HYPERTENSION
     Route: 048
  6. LASIX [Concomitant]
     Indication: LYMPHOEDEMA
     Route: 048
  7. ASPIRIN [Concomitant]
     Indication: PRODUCT USED FOR UNKNOWN INDICATION
  8. COUMADIN [Concomitant]
     Indication: PRODUCT USED FOR UNKNOWN INDICATION
     Route: 048
  9. HUMIRA [Suspect]
     Route: 058
     Dates: start: 20110527

REACTIONS (7)
  - STAPHYLOCOCCAL INFECTION [None]
  - SQUAMOUS CELL CARCINOMA OF SKIN [None]
  - PAIN IN EXTREMITY [None]
  - WOUND DRAINAGE [None]
  - SKIN CANCER [None]
  - ARTHRITIS [None]
  - WOUND [None]
